FAERS Safety Report 8923521 (Version 2)
Quarter: 2012Q4

REPORT INFORMATION
  Report Type: 
  Country: IT (occurrence: IT)
  Receive Date: 20121123
  Receipt Date: 20121206
  Transmission Date: 20130627
  Serious: Yes (Hospitalization)
  Sender: FDA-Public Use
  Company Number: IT-PFIZER INC-2012290774

PATIENT
  Age: 86 Year
  Sex: Female

DRUGS (4)
  1. MEDROL [Suspect]
     Dosage: 16mg 1 dosage unit, daily
     Route: 048
     Dates: start: 20121029, end: 20121114
  2. ARIXTRA [Suspect]
     Indication: THROMBOSIS PROPHYLAXIS
     Dosage: 1 DF, 1x/day
     Route: 058
     Dates: start: 20121029, end: 20121114
  3. CARDIOASPIRIN [Suspect]
     Indication: THROMBOSIS PROPHYLAXIS
     Dosage: 1 DF, 1x/day
     Route: 048
     Dates: start: 20120101, end: 20121114
  4. DELAPRIDE [Concomitant]
     Indication: ESSENTIAL HYPERTENSION
     Dosage: 1 DF, UNK
     Route: 048
     Dates: start: 20120101, end: 20121114

REACTIONS (2)
  - Abdominal pain upper [Unknown]
  - Haematemesis [Unknown]
